FAERS Safety Report 16317606 (Version 1)
Quarter: 2019Q2

REPORT INFORMATION
  Report Type: Spontaneous
  Country: BR (occurrence: BR)
  Receive Date: 20190516
  Receipt Date: 20190516
  Transmission Date: 20190711
  Serious: Yes (Other)
  Sender: FDA-Public Use
  Company Number: BR-ROCHE-2313566

PATIENT
  Sex: Female

DRUGS (8)
  1. RITUXIMAB. [Suspect]
     Active Substance: RITUXIMAB
     Indication: DIFFUSE LARGE B-CELL LYMPHOMA
     Dosage: 1 CYCLE OF R-DHAP
     Route: 065
     Dates: start: 201901
  2. RITUXIMAB. [Suspect]
     Active Substance: RITUXIMAB
     Dosage: 6 CYCLES OF R-CHOP
     Route: 065
     Dates: start: 201712, end: 201808
  3. CISPLATIN. [Suspect]
     Active Substance: CISPLATIN
     Indication: DIFFUSE LARGE B-CELL LYMPHOMA
     Dosage: 1 CYCLE OF R-DHAP
     Route: 065
     Dates: start: 20190101
  4. DEXAMETHASONE. [Suspect]
     Active Substance: DEXAMETHASONE
     Indication: DIFFUSE LARGE B-CELL LYMPHOMA
     Dosage: 1 CYCLE OF R-DHAP
     Route: 065
     Dates: start: 20190101
  5. RITUXIMAB. [Suspect]
     Active Substance: RITUXIMAB
     Dosage: 1 CYCLE OF RGEMOX
     Route: 065
     Dates: start: 20190307
  6. GEMCITABINE [Concomitant]
     Active Substance: GEMCITABINE\GEMCITABINE HYDROCHLORIDE
     Dosage: 1 CYCLE OF RGEMOX
     Route: 065
     Dates: start: 20190307
  7. OXALIPLATIN. [Concomitant]
     Active Substance: OXALIPLATIN
     Dosage: 1 CYCLE OF RGEMOX
     Route: 065
     Dates: start: 20190307
  8. CYTARABINE. [Suspect]
     Active Substance: CYTARABINE
     Indication: DIFFUSE LARGE B-CELL LYMPHOMA
     Dosage: 1 CYCLE OF R-DHAP
     Route: 065
     Dates: start: 20190101

REACTIONS (3)
  - Neutropenia [Unknown]
  - Haemorrhage [Unknown]
  - Renal failure [Unknown]
